FAERS Safety Report 6375125-4 (Version None)
Quarter: 2009Q3

REPORT INFORMATION
  Report Type: 
  Country: None (occurrence: None)
  Receive Date: 20090922
  Receipt Date: 20090922
  Transmission Date: 20100115
  Serious: Yes (Hospitalization)
  Sender: FDA-Public Use
  Company Number: None

PATIENT
  Age: 59 Year
  Sex: Male

DRUGS (2)
  1. GABAPENTIN [Suspect]
     Dosage: 600 MG TID PO
     Route: 048
     Dates: start: 20090630, end: 20090718
  2. VENLAFAXINE [Suspect]
     Dosage: 150 MG BID PO
     Route: 048
     Dates: start: 20090630

REACTIONS (1)
  - DELIRIUM [None]
